FAERS Safety Report 6635759-6 (Version None)
Quarter: 2010Q1

REPORT INFORMATION
  Report Type: 
  Country: None (occurrence: None)
  Receive Date: 20100309
  Receipt Date: 20100304
  Transmission Date: 20100710
  Serious: Yes (Death, Life-Threatening)
  Sender: FDA-Public Use
  Company Number: DSJ-2010-03450

PATIENT
  Age: 75 Year
  Sex: Male
  Weight: 60 kg

DRUGS (6)
  1. OLMESARTAN MEDOXOMIL [Suspect]
     Indication: ESSENTIAL HYPERTENSION
     Dosage: 10 MG (10 MG, 1 IN 1 D),PER ORAL; 20 MG (20 MG, 1 IN 1 D),PER ORAL; 40 MG (20 MG, 2 IN 1 D),PER ORAL
     Route: 048
     Dates: start: 20060929, end: 20061107
  2. OLMESARTAN MEDOXOMIL [Suspect]
     Indication: ESSENTIAL HYPERTENSION
     Dosage: 10 MG (10 MG, 1 IN 1 D),PER ORAL; 20 MG (20 MG, 1 IN 1 D),PER ORAL; 40 MG (20 MG, 2 IN 1 D),PER ORAL
     Route: 048
     Dates: start: 20061108, end: 20070401
  3. OLMESARTAN MEDOXOMIL [Suspect]
     Indication: ESSENTIAL HYPERTENSION
     Dosage: 10 MG (10 MG, 1 IN 1 D),PER ORAL; 20 MG (20 MG, 1 IN 1 D),PER ORAL; 40 MG (20 MG, 2 IN 1 D),PER ORAL
     Route: 048
     Dates: start: 20070402, end: 20090108
  4. CALBLOCK (AZELNIDIPINE) (TABLET) (AZELNIDIPINE) [Suspect]
     Indication: DRUG USE FOR UNKNOWN INDICATION
     Dosage: 8 MG (8 MG  1 IN 1 D), PER ORAL
     Route: 047
     Dates: start: 20071107, end: 20090108
  5. MAGMIT (MAGNESIUM OXIDE)(MAGNESIUM OXIDE) [Concomitant]
  6. ONON (PRANLUKAST)(CAPSULE)(PRANLUKAST) [Concomitant]

REACTIONS (5)
  - CEREBRAL INFARCTION [None]
  - DRUG INEFFECTIVE [None]
  - HYPOTENSION [None]
  - INFECTION [None]
  - PNEUMONIA [None]
